FAERS Safety Report 23814226 (Version 1)
Quarter: 2024Q2

REPORT INFORMATION
  Report Type: Spontaneous
  Country: US (occurrence: None)
  Receive Date: 20240502
  Receipt Date: 20240502
  Transmission Date: 20240716
  Serious: Yes (Death, Hospitalization)
  Sender: FDA-Public Use
  Company Number: None

PATIENT
  Age: 71 Year
  Sex: Female

DRUGS (16)
  1. OPSUMIT [Suspect]
     Active Substance: MACITENTAN
     Indication: Pulmonary hypertension
     Dosage: FREQUENCY : DAILY;?
     Route: 048
     Dates: start: 20140105, end: 20140419
  2. SILDENAFIL [Concomitant]
  3. TREPROSTINIL [Concomitant]
  4. SPIRONOLACTONE [Concomitant]
  5. TRAZODONE [Concomitant]
  6. LIDOCAINE PATCH [Concomitant]
     Active Substance: LIDOCAINE
  7. MUCOMYST [Concomitant]
     Active Substance: ACETYLCYSTEINE
  8. BUMEX [Concomitant]
     Active Substance: BUMETANIDE
  9. PREDNISONE [Concomitant]
  10. METHOTREXATE [Concomitant]
     Active Substance: METHOTREXATE
  11. METHIMAZOLE [Concomitant]
  12. SEPTRA DS [Concomitant]
     Active Substance: SULFAMETHOXAZOLE\TRIMETHOPRIM
  13. WIXELA INHUB [Concomitant]
     Active Substance: FLUTICASONE PROPIONATE\SALMETEROL XINAFOATE
  14. OMEPRAZOLE [Concomitant]
     Active Substance: DONEPEZIL HYDROCHLORIDE\OMEPRAZOLE\OMEPRAZOLE MAGNESIUM
  15. VITAMINS [Concomitant]
     Active Substance: VITAMINS
  16. ALBUTEROL [Concomitant]
     Active Substance: ALBUTEROL

REACTIONS (9)
  - Respiratory arrest [None]
  - Lung opacity [None]
  - Aspiration [None]
  - Vomiting [None]
  - Chest pain [None]
  - Troponin increased [None]
  - Pulmonary hypertension [None]
  - Cholecystitis [None]
  - Cardiac arrest [None]

NARRATIVE: CASE EVENT DATE: 20240316
